FAERS Safety Report 18191031 (Version 1)
Quarter: 2020Q3

REPORT INFORMATION
  Report Type: Spontaneous
  Country: US (occurrence: US)
  Receive Date: 20200824
  Receipt Date: 20200824
  Transmission Date: 20201103
  Serious: No
  Sender: FDA-Public Use
  Company Number: US-ROCHE-2554439

PATIENT
  Sex: Female
  Weight: 125.3 kg

DRUGS (1)
  1. ALECENSA [Suspect]
     Active Substance: ALECTINIB HYDROCHLORIDE
     Indication: LUNG NEOPLASM
     Dosage: NO
     Route: 065
     Dates: start: 20191228

REACTIONS (2)
  - Migraine [Recovered/Resolved]
  - Fatigue [Recovered/Resolved]
